FAERS Safety Report 19123278 (Version 1)
Quarter: 2021Q2

REPORT INFORMATION
  Report Type: Spontaneous
  Country: US (occurrence: US)
  Receive Date: 20210412
  Receipt Date: 20210412
  Transmission Date: 20210717
  Serious: No
  Sender: FDA-Public Use
  Company Number: US-SA-2021SA110855

PATIENT
  Age: 64 Year
  Sex: Female

DRUGS (1)
  1. CAPRELSA [Suspect]
     Active Substance: VANDETANIB
     Indication: THYROID CANCER
     Dosage: UNK
     Route: 048
     Dates: start: 20120703

REACTIONS (3)
  - Feeling abnormal [Unknown]
  - Somnolence [Unknown]
  - Fatigue [Unknown]
